FAERS Safety Report 5981220-1 (Version None)
Quarter: 2008Q4

REPORT INFORMATION
  Report Type: 
  Country: None (occurrence: None)
  Receive Date: 20081205
  Receipt Date: 20081205
  Transmission Date: 20090506
  Serious: Yes (Other)
  Sender: FDA-Public Use
  Company Number: A0759255A

PATIENT
  Age: 47 Year
  Sex: Male
  Weight: 90.9 kg

DRUGS (2)
  1. ALLI [Suspect]
     Indication: WEIGHT LOSS DIET
     Route: 048
     Dates: start: 20071207
  2. COUGH DROP [Suspect]
     Indication: DRUG USE FOR UNKNOWN INDICATION
     Route: 002

REACTIONS (8)
  - ABDOMINAL PAIN [None]
  - CONSTIPATION [None]
  - DEFAECATION URGENCY [None]
  - DIARRHOEA [None]
  - HAEMATOCHEZIA [None]
  - INTENTIONAL DRUG MISUSE [None]
  - RECTAL DISCHARGE [None]
  - RECTAL HAEMORRHAGE [None]
